FAERS Safety Report 9029903 (Version 1)
Quarter: 2013Q1

REPORT INFORMATION
  Report Type: Spontaneous
  Country: US (occurrence: US)
  Receive Date: 20130124
  Receipt Date: 20130124
  Transmission Date: 20140127
  Serious: Yes (Other)
  Sender: FDA-Public Use
  Company Number: US-BAYER-2013-008179

PATIENT
  Age: 50 Year
  Sex: Female

DRUGS (12)
  1. YAZ [Suspect]
  2. PREDNISONE [Concomitant]
     Dosage: 5 MG, QD
     Route: 048
  3. LISINOPRIL [Concomitant]
     Dosage: 10 MG, UNK
     Route: 048
  4. VAGIFEM [Concomitant]
     Dosage: 25 MCG TWICE A WEEK FOR 2 WEEKS
     Route: 067
  5. SYNTHROID [Concomitant]
     Dosage: 100 MCG Q AM (INTERPRETED AS EVERY MORNING)
  6. ACIPHEX [Concomitant]
     Dosage: 20 MG, Q AM (EVERY MORNING)
  7. LORAZEPAM [Concomitant]
     Dosage: 1 MG, UNK
  8. NORVASC [Concomitant]
     Dosage: 10 MG, UNK
     Route: 048
  9. MIRALAX [Concomitant]
  10. MIRALAX [Concomitant]
  11. VITAMIN B12 [Concomitant]
  12. CALCIUM [Concomitant]

REACTIONS (1)
  - Deep vein thrombosis [None]
